FAERS Safety Report 10149287 (Version 1)
Quarter: 2014Q2

REPORT INFORMATION
  Report Type: Spontaneous
  Country: AU (occurrence: None)
  Receive Date: 20140430
  Receipt Date: 20140430
  Transmission Date: 20141212
  Serious: Yes (Death)
  Sender: FDA-Public Use
  Company Number: 2014AP002672

PATIENT
  Age: 78 Year
  Sex: Male

DRUGS (2)
  1. LEFLUNOMIDE [Suspect]
     Route: 048
  2. PREDNISOLONE (PREDNISOLONE) [Concomitant]

REACTIONS (5)
  - Cellulitis [None]
  - Pneumonia [None]
  - Diarrhoea [None]
  - Myocardial infarction [None]
  - Cardiogenic shock [None]
